FAERS Safety Report 17460376 (Version 1)
Quarter: 2020Q1

REPORT INFORMATION
  Report Type: Spontaneous
  Country: US (occurrence: US)
  Receive Date: 20200225
  Receipt Date: 20200225
  Transmission Date: 20200409
  Serious: No
  Sender: FDA-Public Use
  Company Number: US-CELLTRION INC.-2020US019141

PATIENT

DRUGS (3)
  1. TRUXIMA [Suspect]
     Active Substance: RITUXIMAB-ABBS
     Indication: PRODUCT USED FOR UNKNOWN INDICATION
     Dosage: 600 MG (STARTED AT 100ML/HR)
     Route: 042
  2. TRUXIMA [Suspect]
     Active Substance: RITUXIMAB-ABBS
     Dosage: 600 MG (STARTED AT 100ML/HR)
     Route: 042
  3. TRUXIMA [Suspect]
     Active Substance: RITUXIMAB-ABBS
     Dosage: 600 MG (STARTED AT 50ML/HR)
     Route: 042

REACTIONS (5)
  - Chills [Unknown]
  - Rash pruritic [Unknown]
  - Abdominal pain upper [Unknown]
  - Headache [Unknown]
  - Abdominal distension [Unknown]
